FAERS Safety Report 15905209 (Version 2)
Quarter: 2019Q1

REPORT INFORMATION
  Report Type: Report from Study
  Country: JP (occurrence: JP)
  Receive Date: 20190204
  Receipt Date: 20190301
  Transmission Date: 20190417
  Serious: Yes (Hospitalization)
  Sender: FDA-Public Use
  Company Number: JP-DSJP-DSJ-2018-152832AA

PATIENT
  Age: 69 Year
  Sex: Male
  Weight: 80 kg

DRUGS (4)
  1. REBAMIPIDE [Concomitant]
     Active Substance: REBAMIPIDE
     Dosage: 100 MG, BID
     Route: 048
     Dates: start: 20170210, end: 20170221
  2. CELECOX [Suspect]
     Active Substance: CELECOXIB
     Dosage: 100 MG, BID
     Route: 048
     Dates: start: 20170213, end: 20170221
  3. TRAMCET [Concomitant]
     Active Substance: ACETAMINOPHEN\TRAMADOL
     Dosage: 37.5MG/32.5MG, QID
     Route: 048
     Dates: start: 20170212, end: 20170221
  4. LIXIANA TABLETS 15MG [Suspect]
     Active Substance: EDOXABAN TOSYLATE
     Indication: HIP ARTHROPLASTY
     Dosage: 15 MG, QD
     Route: 048
     Dates: start: 20170214, end: 20170221

REACTIONS (1)
  - Duodenal ulcer haemorrhage [Recovering/Resolving]

NARRATIVE: CASE EVENT DATE: 20170222
